FAERS Safety Report 5514988-9 (Version None)
Quarter: 2007Q4

REPORT INFORMATION
  Report Type: 
  Country: None (occurrence: None)
  Receive Date: 20071113
  Receipt Date: 20061221
  Transmission Date: 20080405
  Serious: No
  Sender: FDA-Public Use
  Company Number: A0626180A

PATIENT
  Age: 69 Year
  Sex: Female

DRUGS (5)
  1. COREG [Suspect]
     Indication: HYPERTENSION
     Dosage: 12.5MG TWICE PER DAY
     Route: 048
     Dates: start: 20060601
  2. LISINOPRIL [Concomitant]
  3. TRAVATAN [Concomitant]
  4. COSOPT [Concomitant]
  5. ALPHAGAN [Concomitant]

REACTIONS (3)
  - DRUG INEFFECTIVE [None]
  - HYPERTENSION [None]
  - PHARMACEUTICAL PRODUCT COMPLAINT [None]
